FAERS Safety Report 5711082-9 (Version None)
Quarter: 2008Q2

REPORT INFORMATION
  Report Type: 
  Country: None (occurrence: None)
  Receive Date: 20080421
  Receipt Date: 20080408
  Transmission Date: 20081010
  Serious: Yes (Other)
  Sender: FDA-Public Use
  Company Number: GB-AMGEN-UK272122

PATIENT
  Age: 47 Year
  Sex: Male

DRUGS (4)
  1. NEUPOGEN [Suspect]
     Indication: CHEMOTHERAPY
  2. CYTARABINE [Suspect]
  3. FLUDARABINE PHOSPHATE [Suspect]
  4. IDARUBICIN HCL [Suspect]
     Route: 065

REACTIONS (2)
  - NEUTROPENIA [None]
  - SINUSITIS FUNGAL [None]
